FAERS Safety Report 5224933-1 (Version None)
Quarter: 2007Q1

REPORT INFORMATION
  Report Type: 
  Country: None (occurrence: None)
  Receive Date: 20070126
  Receipt Date: 20070112
  Transmission Date: 20070707
  Serious: Yes (Other)
  Sender: FDA-Public Use
  Company Number: ST-2007-009482

PATIENT
  Age: 71 Year
  Sex: Male

DRUGS (1)
  1. OLMETEC [Suspect]
     Indication: HYPERTENSION
     Dosage: 20 MG QD; PO
     Route: 048
     Dates: start: 20051214, end: 20061201

REACTIONS (2)
  - EOSINOPHIL PERCENTAGE INCREASED [None]
  - RASH [None]
